FAERS Safety Report 6054748-6 (Version None)
Quarter: 2009Q1

REPORT INFORMATION
  Report Type: 
  Country: None (occurrence: None)
  Receive Date: 20090128
  Receipt Date: 20090119
  Transmission Date: 20090719
  Serious: Yes (Disabling)
  Sender: FDA-Public Use
  Company Number: JP-AMGEN-US300377

PATIENT
  Age: 59 Year
  Sex: Female

DRUGS (1)
  1. ENBREL [Suspect]
     Indication: RHEUMATOID ARTHRITIS
     Route: 058
     Dates: start: 20080401

REACTIONS (4)
  - CONDITION AGGRAVATED [None]
  - OTITIS MEDIA CHRONIC [None]
  - SINUSITIS [None]
  - TYMPANIC MEMBRANE PERFORATION [None]
